FAERS Safety Report 6348156-8 (Version None)
Quarter: 2009Q3

REPORT INFORMATION
  Report Type: 
  Country: None (occurrence: None)
  Receive Date: 20090910
  Receipt Date: 20090902
  Transmission Date: 20100115
  Serious: Yes (Hospitalization)
  Sender: FDA-Public Use
  Company Number: BW-GILEAD-2009-0024058

PATIENT
  Age: 31 Year
  Sex: Female
  Weight: 45 kg

DRUGS (2)
  1. TRUVADA [Suspect]
     Indication: HIV INFECTION
     Route: 048
     Dates: start: 20070302, end: 20090718
  2. NEVIRAPINE [Suspect]
     Indication: HIV INFECTION
     Dates: start: 20070302, end: 20090718

REACTIONS (1)
  - ABORTION INFECTED [None]
